FAERS Safety Report 25890022 (Version 1)
Quarter: 2025Q4

REPORT INFORMATION
  Report Type: Spontaneous
  Country: US (occurrence: None)
  Receive Date: 20251006
  Receipt Date: 20251006
  Transmission Date: 20260118
  Serious: No
  Sender: FDA-CTU
  Company Number: None

PATIENT
  Age: 66 Year
  Sex: Female

DRUGS (1)
  1. DUPIXENT [Suspect]
     Active Substance: DUPILUMAB
     Indication: Nasal polyps
     Dosage: OTHER QUANTITY : 300MG/2ML;?
     Route: 058
     Dates: start: 20250608, end: 20250909

REACTIONS (1)
  - Oral herpes [None]

NARRATIVE: CASE EVENT DATE: 20251005
